FAERS Safety Report 17890000 (Version 1)
Quarter: 2020Q2

REPORT INFORMATION
  Report Type: Report from Study
  Country: US (occurrence: US)
  Receive Date: 20200612
  Receipt Date: 20200612
  Transmission Date: 20200714
  Serious: Yes (Death)
  Sender: FDA-Public Use
  Company Number: US-ROCHE-2605847

PATIENT
  Age: 59 Year
  Sex: Female
  Weight: 86 kg

DRUGS (8)
  1. HYDROXYCHLOROQUINE [Concomitant]
     Active Substance: HYDROXYCHLOROQUINE
     Indication: COVID-19
     Dosage: 400 MG X 1 THEN 200 MG BID
     Route: 065
     Dates: start: 20200405, end: 20200409
  2. CEFTRIAXONE. [Concomitant]
     Active Substance: CEFTRIAXONE
     Indication: COVID-19
     Route: 065
     Dates: start: 20200402, end: 20200404
  3. ACTEMRA [Suspect]
     Active Substance: TOCILIZUMAB
     Indication: ACUTE RESPIRATORY FAILURE
     Route: 042
     Dates: start: 20200413, end: 20200413
  4. AZITHROMYCIN ANHYDROUS. [Concomitant]
     Active Substance: AZITHROMYCIN ANHYDROUS
     Indication: COVID-19
     Route: 065
     Dates: start: 20200402, end: 20200407
  5. OXYGEN. [Concomitant]
     Active Substance: OXYGEN
  6. ACTEMRA [Suspect]
     Active Substance: TOCILIZUMAB
     Indication: CORONAVIRUS INFECTION
     Route: 042
     Dates: start: 20200413, end: 20200413
  7. ACTEMRA [Suspect]
     Active Substance: TOCILIZUMAB
     Route: 042
     Dates: start: 20200413, end: 20200413
  8. CEFTRIAXONE. [Concomitant]
     Active Substance: CEFTRIAXONE
     Route: 065
     Dates: start: 20200405, end: 20200410

REACTIONS (7)
  - Cholecystitis [Fatal]
  - Intentional product use issue [Unknown]
  - Liver function test increased [Fatal]
  - Thrombocytopenia [Fatal]
  - Off label use [Unknown]
  - Pancreatitis [Fatal]
  - Renal failure [Fatal]

NARRATIVE: CASE EVENT DATE: 20200415
